FAERS Safety Report 8567514-4 (Version None)
Quarter: 2012Q3

REPORT INFORMATION
  Report Type: 
  Country: None (occurrence: None)
  Receive Date: 20120803
  Receipt Date: 20110919
  Transmission Date: 20120928
  Serious: No
  Sender: FDA-Public Use
  Company Number: US-ABBOTT-11P-163-0856210-00

PATIENT
  Sex: Female
  Weight: 68.1 kg

DRUGS (7)
  1. HYDROCHLOROTHIAZDE TAB [Concomitant]
     Indication: PRODUCT USED FOR UNKNOWN INDICATION
  2. BENICAR [Concomitant]
     Indication: PRODUCT USED FOR UNKNOWN INDICATION
  3. NIASPAN [Suspect]
     Indication: LDL/HDL RATIO INCREASED
  4. UNKNOWN HEADACHE MEDICATION [Concomitant]
     Indication: PRODUCT USED FOR UNKNOWN INDICATION
  5. NIASPAN [Suspect]
     Indication: LDL/HDL RATIO DECREASED
     Dosage: AT BEDTIME
     Dates: start: 20090101
  6. SIMVASTATIN [Concomitant]
     Indication: BLOOD CHOLESTEROL INCREASED
  7. UNKNOWN ALLERGY MEDICATION [Concomitant]
     Indication: PRODUCT USED FOR UNKNOWN INDICATION

REACTIONS (7)
  - MENOPAUSE [None]
  - SLEEP DISORDER [None]
  - HOT FLUSH [None]
  - FLUSHING [None]
  - SKIN TIGHTNESS [None]
  - ERYTHEMA [None]
  - FEELING HOT [None]
